FAERS Safety Report 18331154 (Version 5)
Quarter: 2022Q3

REPORT INFORMATION
  Report Type: Report from Study
  Country: CO (occurrence: CO)
  Receive Date: 20200930
  Receipt Date: 20220726
  Transmission Date: 20221027
  Serious: Yes (Hospitalization, Other)
  Sender: FDA-Public Use
  Company Number: None

PATIENT
  Age: 24 Year
  Sex: Male
  Weight: 78 kg

DRUGS (7)
  1. VOTRIENT [Suspect]
     Active Substance: PAZOPANIB HYDROCHLORIDE
     Indication: Soft tissue sarcoma
     Dosage: 800 MG, QD
     Route: 048
     Dates: start: 202008, end: 20200920
  2. VOTRIENT [Suspect]
     Active Substance: PAZOPANIB HYDROCHLORIDE
     Dosage: UNK
     Route: 048
  3. VOTRIENT [Suspect]
     Active Substance: PAZOPANIB HYDROCHLORIDE
     Dosage: 800 MG, Q24H
     Route: 048
     Dates: start: 20200820
  4. VOTRIENT [Suspect]
     Active Substance: PAZOPANIB HYDROCHLORIDE
     Dosage: 800 MG, QD (2 OF 400 MG)
     Route: 048
     Dates: start: 202009
  5. VOTRIENT [Suspect]
     Active Substance: PAZOPANIB HYDROCHLORIDE
     Dosage: 800 MG, Q24H
     Route: 048
     Dates: start: 20210315
  6. VOTRIENT [Suspect]
     Active Substance: PAZOPANIB HYDROCHLORIDE
     Dosage: 800 MG, QD
     Route: 048
  7. PAZOPANIB [Concomitant]
     Active Substance: PAZOPANIB
     Indication: Product used for unknown indication
     Dosage: 2 DOSAGE FORM, QD
     Route: 065

REACTIONS (11)
  - Musculoskeletal chest pain [Recovered/Resolved]
  - Soft tissue sarcoma [Unknown]
  - Malignant neoplasm progression [Unknown]
  - Pulmonary mass [Unknown]
  - Pulmonary mass [Recovered/Resolved]
  - Metastases to lung [Unknown]
  - Abdominal discomfort [Unknown]
  - Gastritis [Unknown]
  - Abdominal pain [Unknown]
  - Diarrhoea [Unknown]
  - Drug ineffective [Unknown]

NARRATIVE: CASE EVENT DATE: 20210401
